FAERS Safety Report 15723129 (Version 1)
Quarter: 2018Q4

REPORT INFORMATION
  Report Type: Spontaneous
  Country: US (occurrence: US)
  Receive Date: 20181214
  Receipt Date: 20181214
  Transmission Date: 20190205
  Serious: Yes (Death)
  Sender: FDA-Public Use
  Company Number: None

PATIENT
  Age: 55 Year
  Sex: Male

DRUGS (22)
  1. MONTELUKAST/LEVOFLOXACIN [Concomitant]
  2. BASAGLAR [Concomitant]
     Active Substance: INSULIN GLARGINE
  3. FLUOROURACIL. [Concomitant]
     Active Substance: FLUOROURACIL
  4. ROSUVASTATIN/TRESIBA FLEX [Concomitant]
  5. BENZONATATE/DICYCLOMINE [Concomitant]
  6. LOSARTAN POT/PROMETH/COD SOL [Concomitant]
  7. TRESIBA FLEX [Concomitant]
  8. EZETIMIBE. [Concomitant]
     Active Substance: EZETIMIBE
  9. PANTOPRAZOLE/TRULICITY [Concomitant]
  10. PIOGLITA/MET/ISOSORB MONO [Concomitant]
  11. DOXYCYCL HYC [Concomitant]
  12. DOXYCYC MONO [Concomitant]
     Active Substance: DOXYCYCLINE
  13. EZETIMIBE/AZITHROMYCIN [Concomitant]
  14. METOPROL TAR/PROMETHAZINE [Concomitant]
  15. HUMALOG/CLOPIDOGREL [Concomitant]
  16. AMOX/K CLAV [Concomitant]
     Active Substance: AMOXICILLIN\CLAVULANATE POTASSIUM
  17. GLUCAGON. [Concomitant]
     Active Substance: GLUCAGON
  18. ESBRIET [Suspect]
     Active Substance: PIRFENIDONE
     Indication: IDIOPATHIC PULMONARY FIBROSIS
     Route: 048
     Dates: start: 20180308
  19. GABAPENTIN. [Concomitant]
     Active Substance: GABAPENTIN
  20. ALBUTEROL. [Concomitant]
     Active Substance: ALBUTEROL
  21. PREDNISONE. [Concomitant]
     Active Substance: PREDNISONE
  22. TORSEMIDE. [Concomitant]
     Active Substance: TORSEMIDE

REACTIONS (1)
  - Death [None]

NARRATIVE: CASE EVENT DATE: 20181211
